FAERS Safety Report 6752472-5 (Version None)
Quarter: 2010Q2

REPORT INFORMATION
  Report Type: 
  Country: None (occurrence: None)
  Receive Date: 20100601
  Receipt Date: 20100601
  Transmission Date: 20101027
  Serious: Yes (Hospitalization)
  Sender: FDA-Public Use
  Company Number: None

PATIENT
  Sex: Male
  Weight: 79.3795 kg

DRUGS (6)
  1. METHOTREXATE [Suspect]
     Indication: TRANSITIONAL CELL CARCINOMA
     Dosage: EVERY 2 WEEKS X 3
     Route: 042
     Dates: start: 20100311
  2. METHOTREXATE [Suspect]
     Indication: TRANSITIONAL CELL CARCINOMA
     Dosage: EVERY 2 WEEKS X 3
     Route: 042
     Dates: start: 20100325
  3. METHOTREXATE [Suspect]
     Indication: TRANSITIONAL CELL CARCINOMA
     Dosage: EVERY 2 WEEKS X 3
     Route: 042
     Dates: start: 20100408
  4. VINBLASTINE 3 MG/M2 IV [Suspect]
     Indication: TRANSITIONAL CELL CARCINOMA
     Dosage: EVERY 2 WEEKS X 3
     Route: 042
     Dates: start: 20100325
  5. DOXORUBICIN 30 MG/M2 IV [Suspect]
     Dosage: EVERY 2 WKS X 3 WITH NEULASTA
     Route: 042
     Dates: start: 20100408
  6. CISPLATIN [Suspect]
     Dosage: EVERY 2 WKS X 3 WITH NEULASTA
     Dates: start: 20100408

REACTIONS (1)
  - DEVICE OCCLUSION [None]
